FAERS Safety Report 6216205-3 (Version None)
Quarter: 2009Q2

REPORT INFORMATION
  Report Type: 
  Country: None (occurrence: None)
  Receive Date: 20090605
  Receipt Date: 20090528
  Transmission Date: 20091009
  Serious: Yes (Other)
  Sender: FDA-Public Use
  Company Number: A0787127A

PATIENT
  Sex: Female

DRUGS (3)
  1. TYKERB [Suspect]
     Indication: DRUG USE FOR UNKNOWN INDICATION
     Dosage: 250MG UNKNOWN
     Route: 048
  2. XELODA [Suspect]
  3. HERCEPTIN [Concomitant]

REACTIONS (3)
  - MALAISE [None]
  - NEOPLASM PROGRESSION [None]
  - THERAPEUTIC RESPONSE UNEXPECTED [None]
